FAERS Safety Report 6071759-5 (Version None)
Quarter: 2009Q1

REPORT INFORMATION
  Report Type: 
  Country: None (occurrence: None)
  Receive Date: 20090205
  Receipt Date: 20090106
  Transmission Date: 20090719
  Serious: Yes (Other)
  Sender: FDA-Public Use
  Company Number: 390001M08NOR

PATIENT
  Sex: Female

DRUGS (1)
  1. CETROTIDE [Suspect]
     Indication: IN VITRO FERTILISATION
     Dosage: 3 MG  FOR   INJECTION
     Route: 051
     Dates: start: 20080121

REACTIONS (5)
  - ABORTION SPONTANEOUS [None]
  - BREAST DISCOMFORT [None]
  - DRUG ADMINISTRATION ERROR [None]
  - DRUG EXPOSURE DURING PREGNANCY [None]
  - FEELING ABNORMAL [None]
